FAERS Safety Report 9998973 (Version 2)
Quarter: 2014Q1

REPORT INFORMATION
  Report Type: Report from Study
  Country: MX (occurrence: MX)
  Receive Date: 20140312
  Receipt Date: 20140320
  Transmission Date: 20141002
  Serious: Yes (Other)
  Sender: FDA-Public Use
  Company Number: MX-ROCHE-1363910

PATIENT
  Age: 41 Year
  Sex: Male

DRUGS (3)
  1. RANIBIZUMAB [Suspect]
     Indication: EYE HAEMORRHAGE
     Dosage: 0.5 MG/0.5 ML, LEFT AND RIGHT EYE
     Route: 050
     Dates: start: 2013, end: 201311
  2. RANIBIZUMAB [Suspect]
     Route: 050
     Dates: start: 201304
  3. INSULIN [Concomitant]
     Route: 065
     Dates: start: 1990

REACTIONS (2)
  - Eye haemorrhage [Unknown]
  - Off label use [Unknown]
